FAERS Safety Report 7546635-9 (Version None)
Quarter: 2011Q2

REPORT INFORMATION
  Report Type: 
  Country: None (occurrence: None)
  Receive Date: 20110614
  Receipt Date: 20110609
  Transmission Date: 20111010
  Serious: Yes (Death)
  Sender: FDA-Public Use
  Company Number: RU-SANOFI-AVENTIS-2011SA036862

PATIENT
  Age: 73 Year
  Sex: Male
  Weight: 89.5 kg

DRUGS (7)
  1. PREDNISONE [Suspect]
     Dates: start: 20110503
  2. DOCETAXEL [Suspect]
     Route: 041
     Dates: start: 20110503, end: 20110503
  3. BLINDED THERAPY [Suspect]
     Indication: PROSTATE CANCER
     Route: 048
     Dates: start: 20110321
  4. DOCETAXEL [Suspect]
     Indication: PROSTATE CANCER
     Route: 041
     Dates: start: 20110321, end: 20110321
  5. ASPIRIN [Concomitant]
     Indication: THROMBOSIS PROPHYLAXIS
     Route: 048
  6. BLINDED THERAPY [Suspect]
     Route: 048
     Dates: start: 20110503, end: 20110516
  7. PREDNISONE [Suspect]
     Indication: PROSTATE CANCER
     Dates: start: 20110321

REACTIONS (4)
  - PYREXIA [None]
  - COUGH [None]
  - ASTHENIA [None]
  - DEATH [None]
